FAERS Safety Report 6386118-5 (Version None)
Quarter: 2009Q3

REPORT INFORMATION
  Report Type: 
  Country: None (occurrence: None)
  Receive Date: 20090929
  Receipt Date: 20081110
  Transmission Date: 20100115
  Serious: Yes (Other)
  Sender: FDA-Public Use
  Company Number: 14359624

PATIENT
  Age: 57 Year
  Sex: Male
  Weight: 68 kg

DRUGS (9)
  1. DEFINITY [Suspect]
     Indication: DIZZINESS
     Dosage: 1 DOSAGE FORM-2ML DILUTE BOLUS INJECTION GIVEN; 1 VIAL DILUTED IN 5ML NORMAL SALINE UPTO 5ML (1 DOSA
     Route: 040
     Dates: start: 20081006
  2. DEFINITY [Suspect]
     Indication: PALPITATIONS
     Dosage: 1 DOSAGE FORM-2ML DILUTE BOLUS INJECTION GIVEN; 1 VIAL DILUTED IN 5ML NORMAL SALINE UPTO 5ML (1 DOSA
     Route: 040
     Dates: start: 20081006
  3. DEFINITY [Suspect]
     Indication: STRESS ECHOCARDIOGRAM
     Dosage: 1 DOSAGE FORM-2ML DILUTE BOLUS INJECTION GIVEN; 1 VIAL DILUTED IN 5ML NORMAL SALINE UPTO 5ML (1 DOSA
     Route: 040
     Dates: start: 20081006
  4. DEFINITY [Suspect]
     Indication: DIZZINESS
     Dosage: 1 DOSAGE FORM-2ML DILUTE BOLUS INJECTION GIVEN; 1 VIAL DILUTED IN 5ML NORMAL SALINE UPTO 5ML (1 DOSA
     Route: 040
     Dates: start: 20081006
  5. DEFINITY [Suspect]
     Indication: PALPITATIONS
     Dosage: 1 DOSAGE FORM-2ML DILUTE BOLUS INJECTION GIVEN; 1 VIAL DILUTED IN 5ML NORMAL SALINE UPTO 5ML (1 DOSA
     Route: 040
     Dates: start: 20081006
  6. DEFINITY [Suspect]
     Indication: STRESS ECHOCARDIOGRAM
     Dosage: 1 DOSAGE FORM-2ML DILUTE BOLUS INJECTION GIVEN; 1 VIAL DILUTED IN 5ML NORMAL SALINE UPTO 5ML (1 DOSA
     Route: 040
     Dates: start: 20081006
  7. DEFINITY [Suspect]
     Indication: DIZZINESS
     Dosage: 1 DOSAGE FORM-2ML DILUTE BOLUS INJECTION GIVEN; 1 VIAL DILUTED IN 5ML NORMAL SALINE UPTO 5ML (1 DOSA
     Route: 040
     Dates: start: 20081006
  8. DEFINITY [Suspect]
     Indication: PALPITATIONS
     Dosage: 1 DOSAGE FORM-2ML DILUTE BOLUS INJECTION GIVEN; 1 VIAL DILUTED IN 5ML NORMAL SALINE UPTO 5ML (1 DOSA
     Route: 040
     Dates: start: 20081006
  9. DEFINITY [Suspect]
     Indication: STRESS ECHOCARDIOGRAM
     Dosage: 1 DOSAGE FORM-2ML DILUTE BOLUS INJECTION GIVEN; 1 VIAL DILUTED IN 5ML NORMAL SALINE UPTO 5ML (1 DOSA
     Route: 040
     Dates: start: 20081006

REACTIONS (3)
  - CHEST DISCOMFORT [None]
  - DIZZINESS [None]
  - URTICARIA [None]
